FAERS Safety Report 24882976 (Version 1)
Quarter: 2025Q1

REPORT INFORMATION
  Report Type: Spontaneous
  Country: US (occurrence: None)
  Receive Date: 20250123
  Receipt Date: 20250123
  Transmission Date: 20250409
  Serious: Yes (Hospitalization, Other)
  Sender: FDA-CTU
  Company Number: None

PATIENT
  Age: 22 Year
  Sex: Male
  Weight: 81 kg

DRUGS (1)
  1. IBUTAMOREN [Suspect]
     Active Substance: IBUTAMOREN

REACTIONS (5)
  - Product use issue [None]
  - Abnormal behaviour [None]
  - Haematemesis [None]
  - Suicidal ideation [None]
  - Withdrawal syndrome [None]

NARRATIVE: CASE EVENT DATE: 20241221
